FAERS Safety Report 20873483 (Version 1)
Quarter: 2022Q2

REPORT INFORMATION
  Report Type: Spontaneous
  Country: US (occurrence: US)
  Receive Date: 20220525
  Receipt Date: 20220525
  Transmission Date: 20220721
  Serious: Yes (Hospitalization)
  Sender: FDA-Public Use
  Company Number: US-MYLANLABS-2022M1038808

PATIENT
  Age: 81 Year
  Sex: Female

DRUGS (1)
  1. QUETIAPINE [Suspect]
     Active Substance: QUETIAPINE
     Indication: Mental disorder
     Dosage: 100 MILLIGRAM, BID
     Route: 065

REACTIONS (3)
  - Dry mouth [Recovering/Resolving]
  - Bacterial parotitis [Recovering/Resolving]
  - Staphylococcal infection [Recovering/Resolving]
